FAERS Safety Report 4678507-1 (Version None)
Quarter: 2005Q2

REPORT INFORMATION
  Report Type: 
  Country: None (occurrence: None)
  Receive Date: 20050601
  Receipt Date: 20050413
  Transmission Date: 20051028
  Serious: Yes (Death, Hospitalization)
  Sender: FDA-Public Use
  Company Number: JP-MERCK-0505USA03334

PATIENT
  Age: 65 Year
  Sex: Male

DRUGS (13)
  1. PEPCID [Suspect]
     Indication: PROPHYLAXIS
     Route: 048
     Dates: start: 20021121
  2. PEPCID [Suspect]
     Route: 048
     Dates: start: 20020323, end: 20021120
  3. FRANDOL [Concomitant]
     Indication: MYOCARDIAL ISCHAEMIA
     Route: 047
     Dates: start: 20010904
  4. LACTULOSE [Concomitant]
     Indication: HEPATIC FAILURE
     Route: 048
     Dates: start: 20040726
  5. LASIX [Concomitant]
     Indication: HEPATIC FAILURE
     Route: 048
     Dates: start: 20040727, end: 20040812
  6. LASIX [Concomitant]
     Route: 048
     Dates: start: 20040813, end: 20040823
  7. ALDACTONE [Concomitant]
     Indication: HEPATIC FAILURE
     Route: 048
     Dates: start: 20040727, end: 20040812
  8. ALDACTONE [Concomitant]
     Route: 048
     Dates: start: 20040813, end: 20040823
  9. HOKUNALIN [Concomitant]
     Indication: COUGH
     Route: 001
     Dates: start: 20040813, end: 20040815
  10. HOKUNALIN [Concomitant]
     Route: 001
     Dates: start: 20040816, end: 20040823
  11. DIGOXIN [Suspect]
     Indication: ATRIAL FIBRILLATION
     Route: 048
     Dates: start: 20020905
  12. LAC-B [Suspect]
     Indication: PROPHYLAXIS
     Route: 048
     Dates: start: 20020207
  13. NUTRITIONAL SUPPLEMENTS [Suspect]
     Indication: HEPATIC FAILURE
     Route: 048
     Dates: start: 20040520

REACTIONS (21)
  - ANAEMIA [None]
  - ASTHENIA [None]
  - ATRIAL FIBRILLATION [None]
  - CARDIO-RESPIRATORY ARREST [None]
  - CIRRHOSIS ALCOHOLIC [None]
  - COUGH [None]
  - DECREASED APPETITE [None]
  - DISSEMINATED INTRAVASCULAR COAGULATION [None]
  - ECCHYMOSIS [None]
  - GROIN PAIN [None]
  - HAEMORRHAGIC ASCITES [None]
  - HAEMORRHAGIC DIATHESIS [None]
  - HEPATIC ENCEPHALOPATHY [None]
  - HEPATIC FAILURE [None]
  - JAUNDICE [None]
  - MALAISE [None]
  - NEPHROTIC SYNDROME [None]
  - POST PROCEDURAL PAIN [None]
  - RHABDOMYOLYSIS [None]
  - SPINAL COMPRESSION FRACTURE [None]
  - SPLENOMEGALY [None]
